FAERS Safety Report 9980402 (Version 1)
Quarter: 2014Q1

REPORT INFORMATION
  Report Type: Spontaneous
  Country: NL (occurrence: NL)
  Receive Date: 20140307
  Receipt Date: 20140307
  Transmission Date: 20141002
  Serious: Yes (Hospitalization)
  Sender: FDA-Public Use
  Company Number: NL-AMGEN-NLDSP2013092080

PATIENT
  Age: 86 Year
  Sex: Male

DRUGS (2)
  1. XGEVA [Suspect]
     Indication: PROPHYLAXIS
     Dosage: 1.7 ML, Q4WK
     Route: 058
     Dates: start: 20120906
  2. XGEVA [Suspect]
     Indication: METASTASES TO BONE

REACTIONS (1)
  - Investigation [Unknown]
